FAERS Safety Report 7553103-7 (Version None)
Quarter: 2011Q2

REPORT INFORMATION
  Report Type: 
  Country: None (occurrence: None)
  Receive Date: 20110616
  Receipt Date: 20091027
  Transmission Date: 20111010
  Serious: Yes (Hospitalization, Other)
  Sender: FDA-Public Use
  Company Number: US-BAYER-200937898NA

PATIENT
  Age: 77 Year
  Sex: Male
  Weight: 86 kg

DRUGS (12)
  1. NAPROSYN [Concomitant]
     Dosage: AS NEEDED
  2. NITROGLYCERIN [Concomitant]
     Dosage: UNK
     Dates: start: 20070529, end: 20070529
  3. LASIX [Concomitant]
     Dosage: UNK
     Dates: start: 20070529, end: 20070529
  4. TOPROL-XL [Concomitant]
     Dosage: 50 MG, QD
  5. DOPAMINE HCL [Concomitant]
     Dosage: UNK
     Dates: start: 20070529, end: 20070529
  6. ASPIRIN [Concomitant]
     Dosage: 325 MG, QD
  7. TRASYLOL [Suspect]
     Indication: CORONARY ARTERY BYPASS
     Dosage: 100 ML LOADING DOSE
     Route: 042
     Dates: start: 20070529, end: 20070529
  8. PROTAMINE SULFATE [Concomitant]
     Dosage: UNK
     Dates: start: 20070529, end: 20070529
  9. RED BLOOD CELLS [Concomitant]
     Dosage: UNK
  10. LIPITOR [Concomitant]
     Dosage: 40 MG, QD
  11. DEXAMETHASONE [Concomitant]
     Dosage: UNK
     Dates: end: 20070529
  12. HEPARIN [Concomitant]
     Dosage: UNK
     Dates: start: 20070529, end: 20070529

REACTIONS (4)
  - INJURY [None]
  - RENAL FAILURE [None]
  - UNEVALUABLE EVENT [None]
  - PAIN [None]
